FAERS Safety Report 15099895 (Version 1)
Quarter: 2018Q3

REPORT INFORMATION
  Report Type: Spontaneous
  Country: US (occurrence: US)
  Receive Date: 20180703
  Receipt Date: 20180703
  Transmission Date: 20181010
  Serious: No
  Sender: FDA-Public Use
  Company Number: US-JNJFOC-20180607999

PATIENT
  Age: 6 Decade
  Sex: Female

DRUGS (5)
  1. ELIQUIS [Concomitant]
     Active Substance: APIXABAN
     Indication: ATRIAL FIBRILLATION
     Route: 065
  2. WOMENS ROGAINE [Suspect]
     Active Substance: MINOXIDIL
     Indication: ANDROGENETIC ALOPECIA
     Route: 061
  3. ACCUPRIL [Concomitant]
     Active Substance: QUINAPRIL HYDROCHLORIDE
     Indication: HYPERTENSION
     Route: 065
  4. LIPITOR [Concomitant]
     Active Substance: ATORVASTATIN CALCIUM
     Indication: BLOOD CHOLESTEROL INCREASED
     Route: 065
  5. WOMENS ROGAINE [Suspect]
     Active Substance: MINOXIDIL
     Route: 061

REACTIONS (2)
  - Skin burning sensation [Recovered/Resolved]
  - Inappropriate schedule of drug administration [Unknown]
